FAERS Safety Report 9945658 (Version 1)
Quarter: 2014Q1

REPORT INFORMATION
  Report Type: Spontaneous
  Country: GB (occurrence: GB)
  Receive Date: 20140303
  Receipt Date: 20140303
  Transmission Date: 20141002
  Serious: Yes (Other)
  Sender: FDA-Public Use
  Company Number: PHHY2014GB022359

PATIENT
  Sex: Male
  Weight: 80 kg

DRUGS (5)
  1. DOXAZOSIN MESYLATE [Suspect]
     Indication: HYPERTENSION
     Dosage: 2 DF, IN THE EVENING
     Route: 048
     Dates: start: 20140120
  2. ATORVASTATIN [Concomitant]
     Dosage: 40 MG
  3. CANDESARTAN CILEXETIL [Concomitant]
     Dosage: 32 MG
  4. CLOPIDOGREL [Concomitant]
     Dosage: 75 MG
  5. LERCANIDIPINE [Concomitant]
     Dosage: 10 MG

REACTIONS (4)
  - Gingival bleeding [Not Recovered/Not Resolved]
  - Supraventricular extrasystoles [Not Recovered/Not Resolved]
  - Dyspnoea [Not Recovered/Not Resolved]
  - Arthralgia [Not Recovered/Not Resolved]
